FAERS Safety Report 13499644 (Version 1)
Quarter: 2017Q2

REPORT INFORMATION
  Report Type: Spontaneous
  Country: US (occurrence: US)
  Receive Date: 20170501
  Receipt Date: 20170501
  Transmission Date: 20170830
  Serious: Yes (Other)
  Sender: FDA-Public Use
  Company Number: None

PATIENT
  Age: 83 Year
  Sex: Female
  Weight: 79.45 kg

DRUGS (14)
  1. ADVAIR HFA [Concomitant]
     Active Substance: FLUTICASONE PROPIONATE\SALMETEROL XINAFOATE
  2. BABY ASPIRIN [Concomitant]
     Active Substance: ASPIRIN
  3. LUCENTIS [Suspect]
     Active Substance: RANIBIZUMAB
     Indication: NEOVASCULAR AGE-RELATED MACULAR DEGENERATION
     Dosage: ?          QUANTITY:G OR?YYYY):;?
  4. ESZOPICLONE. [Concomitant]
     Active Substance: ESZOPICLONE
  5. LOSARTIN [Concomitant]
     Active Substance: LOSARTAN
  6. FISH OIL [Concomitant]
     Active Substance: FISH OIL
  7. I CAPS [Concomitant]
  8. PREDNISONE. [Concomitant]
     Active Substance: PREDNISONE
  9. ATORVASTATIN [Concomitant]
     Active Substance: ATORVASTATIN
  10. VITAMIN B12 [Concomitant]
     Active Substance: CYANOCOBALAMIN
  11. MAGNESIUM [Concomitant]
     Active Substance: MAGNESIUM
  12. BIOTIN [Concomitant]
     Active Substance: BIOTIN
  13. METFORMIN [Concomitant]
     Active Substance: METFORMIN HYDROCHLORIDE
  14. HYMOCYTE [Concomitant]

REACTIONS (3)
  - Blindness transient [None]
  - Injection site discomfort [None]
  - Sinus pain [None]
